FAERS Safety Report 6009126-2 (Version None)
Quarter: 2008Q4

REPORT INFORMATION
  Report Type: 
  Country: None (occurrence: None)
  Receive Date: 20081216
  Receipt Date: 20081208
  Transmission Date: 20090506
  Serious: Yes (Death)
  Sender: FDA-Public Use
  Company Number: 100#08#2008-05927

PATIENT
  Age: 23 Year
  Sex: Male

DRUGS (4)
  1. CARBOPLATIN [Suspect]
     Indication: PROSTATE CANCER
  2. CARBOPLATIN [Suspect]
     Indication: SMALL CELL CARCINOMA
  3. ETOPOSIDE [Suspect]
     Indication: PROSTATE CANCER
     Dosage: 100 MGM2 ON DAYS 1, 2 AND 3
  4. ETOPOSIDE [Suspect]
     Indication: SMALL CELL CARCINOMA
     Dosage: 100 MGM2 ON DAYS 1, 2 AND 3

REACTIONS (4)
  - HYPERCALCAEMIA [None]
  - MALIGNANT NEOPLASM PROGRESSION [None]
  - METASTASES TO BONE [None]
  - RESPIRATORY ARREST [None]
